FAERS Safety Report 10025045 (Version 1)
Quarter: 2014Q1

REPORT INFORMATION
  Report Type: Spontaneous
  Country: US (occurrence: None)
  Receive Date: 20140304
  Receipt Date: 20140304
  Transmission Date: 20141002
  Serious: Yes (Other)
  Sender: FDA-Public Use
  Company Number: KV201300280

PATIENT
  Age: 33 Year
  Sex: Female

DRUGS (5)
  1. MAKENA [Suspect]
     Indication: PREMATURE DELIVERY
     Route: 030
     Dates: start: 20131122, end: 20131210
  2. INSULIN (INSULIN) [Concomitant]
  3. PRENATAL VITAMINS [Concomitant]
  4. IRON [Concomitant]
  5. FOLIC ACID (FOLIC ACID) [Concomitant]

REACTIONS (1)
  - Premature rupture of membranes [None]
